FAERS Safety Report 13347881 (Version 1)
Quarter: 2017Q1

REPORT INFORMATION
  Report Type: Report from Study
  Country: None (occurrence: BR)
  Receive Date: 20170317
  Receipt Date: 20170317
  Transmission Date: 20170428
  Serious: Yes (Other)
  Sender: FDA-Public Use
  Company Number: BR-ABBVIE-17P-020-1907942-00

PATIENT
  Age: 37 Year
  Sex: Male
  Weight: 68 kg

DRUGS (1)
  1. HUMIRA [Suspect]
     Active Substance: ADALIMUMAB
     Indication: RHEUMATOID ARTHRITIS
     Route: 058
     Dates: start: 20150119

REACTIONS (5)
  - Peripheral swelling [Recovering/Resolving]
  - Fall [Recovered/Resolved]
  - Wound [Not Recovered/Not Resolved]
  - Road traffic accident [Recovered/Resolved]
  - Scratch [Recovering/Resolving]

NARRATIVE: CASE EVENT DATE: 20170302
